FAERS Safety Report 19996771 (Version 1)
Quarter: 2021Q4

REPORT INFORMATION
  Report Type: Spontaneous
  Country: US (occurrence: US)
  Receive Date: 20211026
  Receipt Date: 20211026
  Transmission Date: 20220303
  Serious: No
  Sender: FDA-Public Use
  Company Number: US-DRREDDYS-SPO/USA/21/0142610

PATIENT
  Age: 51 Year
  Sex: Male
  Weight: 85.5 kg

DRUGS (7)
  1. HABITROL [Suspect]
     Active Substance: NICOTINE
     Indication: Tobacco user
     Route: 062
  2. HABITROL [Suspect]
     Active Substance: NICOTINE
     Route: 062
  3. HABITROL [Suspect]
     Active Substance: NICOTINE
     Route: 062
  4. HABITROL [Suspect]
     Active Substance: NICOTINE
     Route: 062
  5. HABITROL [Suspect]
     Active Substance: NICOTINE
     Route: 062
  6. HABITROL [Suspect]
     Active Substance: NICOTINE
     Route: 062
  7. HABITROL [Suspect]
     Active Substance: NICOTINE
     Route: 062

REACTIONS (3)
  - Wrong technique in product usage process [Unknown]
  - Product adhesion issue [Unknown]
  - Product use issue [Unknown]
